FAERS Safety Report 7527931-8 (Version None)
Quarter: 2011Q2

REPORT INFORMATION
  Report Type: 
  Country: None (occurrence: None)
  Receive Date: 20110607
  Receipt Date: 20030401
  Transmission Date: 20111010
  Serious: Yes (Death)
  Sender: FDA-Public Use
  Company Number: PHFR2003GB01284

PATIENT
  Sex: Male

DRUGS (2)
  1. CLOZARIL [Suspect]
     Indication: SCHIZOPHRENIA
     Dosage: 425MG/DAY
     Route: 048
     Dates: start: 19960208
  2. PAROXETINE [Concomitant]
     Dosage: 50MG/DAY
     Route: 048

REACTIONS (1)
  - DEATH [None]
